FAERS Safety Report 21886596 (Version 5)
Quarter: 2024Q2

REPORT INFORMATION
  Report Type: Spontaneous
  Country: US (occurrence: US)
  Receive Date: 20230119
  Receipt Date: 20240510
  Transmission Date: 20240716
  Serious: No
  Sender: FDA-Public Use
  Company Number: US-BRISTOL-MYERS SQUIBB COMPANY-2023-008233

PATIENT
  Age: 90 Year
  Sex: Male

DRUGS (5)
  1. ELIQUIS [Interacting]
     Active Substance: APIXABAN
     Indication: Product used for unknown indication
  2. OFEV [Interacting]
     Active Substance: NINTEDANIB
     Indication: Idiopathic pulmonary fibrosis
     Route: 048
  3. OFEV [Interacting]
     Active Substance: NINTEDANIB
     Route: 048
  4. OFEV [Interacting]
     Active Substance: NINTEDANIB
     Route: 048
  5. OFEV [Interacting]
     Active Substance: NINTEDANIB
     Route: 048

REACTIONS (10)
  - Dyspnoea [Unknown]
  - Back pain [Unknown]
  - Headache [Unknown]
  - Cough [Unknown]
  - Nausea [Recovered/Resolved]
  - Diarrhoea [Recovered/Resolved]
  - Speech disorder [Unknown]
  - Drug interaction [Unknown]
  - Dyspnoea exertional [Unknown]
  - Productive cough [Not Recovered/Not Resolved]
